FAERS Safety Report 9826944 (Version 1)
Quarter: 2014Q1

REPORT INFORMATION
  Report Type: Spontaneous
  Country: US (occurrence: None)
  Receive Date: 20140115
  Receipt Date: 20140115
  Transmission Date: 20141002
  Serious: Yes (Hospitalization)
  Sender: FDA-Public Use
  Company Number: CC13-1368

PATIENT
  Sex: 0

DRUGS (1)
  1. IMIQUIMOD [Suspect]
     Indication: ANOGENITAL DYSPLASIA

REACTIONS (16)
  - Rectal perforation [None]
  - Syphilis [None]
  - Myocardial infarction [None]
  - Prostatitis [None]
  - Strabismus correction [None]
  - Pain [None]
  - Pruritus [None]
  - Haemorrhage [None]
  - Abnormal faeces [None]
  - Urge incontinence [None]
  - Diarrhoea [None]
  - Flatulence [None]
  - Influenza like illness [None]
  - Fatigue [None]
  - Hernia repair [None]
  - Intervertebral disc protrusion [None]
